FAERS Safety Report 16931199 (Version 1)
Quarter: 2019Q4

REPORT INFORMATION
  Report Type: Spontaneous
  Country: FR (occurrence: FR)
  Receive Date: 20191017
  Receipt Date: 20191017
  Transmission Date: 20200122
  Serious: Yes (Other)
  Sender: FDA-Public Use
  Company Number: FR-009507513-1910FRA008056

PATIENT
  Sex: Male
  Weight: 72 kg

DRUGS (1)
  1. PROPECIA [Suspect]
     Active Substance: FINASTERIDE
     Indication: DIFFUSE ALOPECIA
     Dosage: 1 TABLET, QD
     Route: 048
     Dates: start: 20030512, end: 20031110

REACTIONS (4)
  - Sexual dysfunction [Unknown]
  - Dyspareunia [Unknown]
  - Testicular pain [Recovered/Resolved]
  - Prostatic adenoma [Not Recovered/Not Resolved]

NARRATIVE: CASE EVENT DATE: 20030801
